FAERS Safety Report 7814083 (Version 4)
Quarter: 2013Q1

REPORT INFORMATION
  Report Type: Spontaneous
  Country: US (occurrence: US)
  Receive Date: 20110216
  Receipt Date: 20130219
  Transmission Date: 20140127
  Serious: Yes (Hospitalization)
  Sender: FDA-Public Use
  Company Number: US-BAYER-2011-014058

PATIENT
  Age: 28 Year
  Sex: Female
  Weight: 104.31 kg

DRUGS (6)
  1. YAZ [Suspect]
     Indication: GENITAL HAEMORRHAGE
     Dosage: UNK
     Route: 048
     Dates: start: 20090122, end: 20090202
  2. ALBUTEROL [Concomitant]
     Indication: BRONCHITIS
     Dosage: UNK UNK, PRN
     Dates: start: 1980
  3. OVCON-35 [Concomitant]
  4. COPPER IUD [Concomitant]
  5. VITAMINS [Concomitant]
     Route: 048
  6. GENTAMICIN [Concomitant]
     Dosage: 0.3 UNK, UNK
     Route: 047

REACTIONS (7)
  - Deep vein thrombosis [None]
  - Oedema peripheral [None]
  - Pain [None]
  - Anxiety [None]
  - Tension [None]
  - Fear [None]
  - Off label use [None]
